FAERS Safety Report 5383519-9 (Version None)
Quarter: 2007Q3

REPORT INFORMATION
  Report Type: 
  Country: None (occurrence: None)
  Receive Date: 20070706
  Receipt Date: 20070622
  Transmission Date: 20080115
  Serious: Yes (Other)
  Sender: FDA-Public Use
  Company Number: 2007VX001704

PATIENT
  Age: 71 Year
  Sex: Female

DRUGS (1)
  1. EFUDEX [Suspect]
     Indication: SKIN LESION
     Dosage: ; TOP
     Route: 061

REACTIONS (2)
  - GENERALISED ERYTHEMA [None]
  - SKIN EXFOLIATION [None]
